FAERS Safety Report 5471581-4 (Version None)
Quarter: 2007Q3

REPORT INFORMATION
  Report Type: 
  Country: None (occurrence: None)
  Receive Date: 20070928
  Receipt Date: 20070222
  Transmission Date: 20080115
  Serious: No
  Sender: FDA-Public Use
  Company Number: US-BRISTOL-MYERS SQUIBB COMPANY-13653449

PATIENT
  Age: 50 Year
  Sex: Male

DRUGS (1)
  1. DEFINITY [Suspect]
     Indication: STRESS ECHOCARDIOGRAM
     Dosage: 1.5 CC DEFINITY IN 8.5 CC NORMAL SALINE. THERAPY DURATION 30-45 MINUTES
     Route: 042
     Dates: start: 20070123, end: 20070123

REACTIONS (3)
  - DIZZINESS [None]
  - PRURITUS [None]
  - URTICARIA [None]
